FAERS Safety Report 14015007 (Version 3)
Quarter: 2019Q1

REPORT INFORMATION
  Report Type: Report from Study
  Country: BR (occurrence: BR)
  Receive Date: 20170927
  Receipt Date: 20190122
  Transmission Date: 20190417
  Serious: Yes (Other)
  Sender: FDA-Public Use
  Company Number: PHHY2017BR116156

PATIENT
  Age: 61 Year
  Sex: Male

DRUGS (1)
  1. COSENTYX [Suspect]
     Active Substance: SECUKINUMAB
     Indication: PSORIATIC ARTHROPATHY
     Dosage: 300 MG, QMO
     Route: 058
     Dates: start: 201701

REACTIONS (14)
  - Agitation [Unknown]
  - Ear discomfort [Unknown]
  - Excessive cerumen production [Unknown]
  - Inappropriate schedule of product administration [Unknown]
  - Contusion [Unknown]
  - Skin lesion [Not Recovered/Not Resolved]
  - Deafness [Unknown]
  - Anger [Unknown]
  - Eye swelling [Unknown]
  - Ocular hyperaemia [Unknown]
  - Psoriasis [Recovering/Resolving]
  - Hypersensitivity [Unknown]
  - Nervousness [Unknown]
  - Skin exfoliation [Unknown]

NARRATIVE: CASE EVENT DATE: 201808
